FAERS Safety Report 10440331 (Version 2)
Quarter: 2014Q3

REPORT INFORMATION
  Report Type: Report from Study
  Country: US (occurrence: US)
  Receive Date: 20140909
  Receipt Date: 20140909
  Transmission Date: 20150326
  Serious: Yes (Death)
  Sender: FDA-Public Use
  Company Number: US-ROCHE-1445856

PATIENT
  Age: 65 Year
  Sex: Male
  Weight: 94.43 kg

DRUGS (4)
  1. ZELBORAF [Suspect]
     Active Substance: VEMURAFENIB
     Indication: PLASMA CELL MYELOMA
     Route: 048
     Dates: start: 20140414, end: 20140716
  2. SERTRALINE [Concomitant]
     Active Substance: SERTRALINE HYDROCHLORIDE
     Route: 048
     Dates: end: 20140716
  3. ACYCLOVIR. [Concomitant]
     Active Substance: ACYCLOVIR
     Indication: PROPHYLAXIS
     Route: 048
     Dates: end: 20140716
  4. PROTONIX (UNITED STATES) [Concomitant]
     Indication: PROPHYLAXIS
     Route: 048
     Dates: end: 20140716

REACTIONS (5)
  - Acute respiratory failure [Fatal]
  - Sepsis [Fatal]
  - Lactic acidosis [Fatal]
  - Ischaemic hepatitis [Fatal]
  - Atrial fibrillation [Fatal]

NARRATIVE: CASE EVENT DATE: 20140716
